FAERS Safety Report 11490950 (Version 2)
Quarter: 2015Q3

REPORT INFORMATION
  Report Type: Spontaneous
  Country: US (occurrence: None)
  Receive Date: 20150910
  Receipt Date: 20150929
  Transmission Date: 20151125
  Serious: Yes (Hospitalization, Other)
  Sender: FDA-Public Use
  Company Number: US-MDT-ADR-2015-01758

PATIENT
  Age: 21 Year
  Sex: Male

DRUGS (2)
  1. LIORESAL [Suspect]
     Active Substance: BACLOFEN
     Indication: MUSCLE SPASTICITY
     Dosage: 2070 MCG/ML; 2072MCG/DA
  2. ORAL BACLOFEN [Suspect]
     Active Substance: BACLOFEN

REACTIONS (10)
  - Hypertonia [None]
  - Decubitus ulcer [None]
  - Muscle spasticity [None]
  - Hypotonia [None]
  - Pain [None]
  - Infusion site fibrosis [None]
  - Joint stiffness [None]
  - Muscle spasms [None]
  - Back pain [None]
  - Somnolence [None]
